FAERS Safety Report 8600480-1 (Version None)
Quarter: 2012Q3

REPORT INFORMATION
  Report Type: 
  Country: None (occurrence: None)
  Receive Date: 20120808
  Receipt Date: 20120808
  Transmission Date: 20120928
  Serious: Yes (Other)
  Sender: FDA-Public Use
  Company Number: None

PATIENT
  Sex: Female
  Weight: 58.9676 kg

DRUGS (1)
  1. PRADAXA [Suspect]
     Indication: ATRIAL FIBRILLATION
     Dosage: 150MG BID PO
     Route: 048
     Dates: start: 20120722, end: 20120729

REACTIONS (7)
  - ARTHRALGIA [None]
  - HEADACHE [None]
  - MYALGIA [None]
  - ASTHENIA [None]
  - PAIN [None]
  - FATIGUE [None]
  - OEDEMA PERIPHERAL [None]
